FAERS Safety Report 4402852-8 (Version None)
Quarter: 2004Q3

REPORT INFORMATION
  Report Type: 
  Country: None (occurrence: None)
  Receive Date: 20040719
  Receipt Date: 32000413
  Transmission Date: 20050211
  Serious: Yes (Other)
  Sender: FDA-Public Use
  Company Number: HQWYE079814JUL04

PATIENT
  Age: 68 Year
  Sex: Female
  Weight: 57.2 kg

DRUGS (3)
  1. PREMARIN [Suspect]
     Indication: HYSTERECTOMY
     Dosage: SEE IMAGE
     Route: 048
     Dates: start: 19760101, end: 20040301
  2. PREMARIN [Suspect]
     Indication: HYSTERECTOMY
     Dosage: SEE IMAGE
     Route: 048
     Dates: start: 20040301, end: 20040301
  3. PREMARIN [Suspect]
     Indication: HYSTERECTOMY
     Dosage: SEE IMAGE
     Route: 048
     Dates: start: 20040101

REACTIONS (11)
  - CRYING [None]
  - DIZZINESS [None]
  - DRUG INEFFECTIVE [None]
  - DRUG WITHDRAWAL SYNDROME [None]
  - DYSPNOEA [None]
  - FEELING ABNORMAL [None]
  - FEELING HOT AND COLD [None]
  - HYPERHIDROSIS [None]
  - MOOD SWINGS [None]
  - PALPITATIONS [None]
  - SUICIDAL IDEATION [None]
